FAERS Safety Report 10562730 (Version 1)
Quarter: 2014Q4

REPORT INFORMATION
  Report Type: Spontaneous
  Country: US (occurrence: None)
  Receive Date: 20141103
  Receipt Date: 20141103
  Transmission Date: 20150529
  Serious: No
  Sender: FDA-Public Use
  Company Number: None

PATIENT
  Age: 34 Year
  Sex: Male
  Weight: 85.73 kg

DRUGS (9)
  1. AMOXICILLIN AND CLAVULANATE POTASSIUM [Concomitant]
     Active Substance: AMOXICILLIN\CLAVULANATE POTASSIUM
  2. NABUMETONE. [Concomitant]
     Active Substance: NABUMETONE
  3. DIVALPROEX DR [Concomitant]
     Active Substance: DIVALPROEX SODIUM
  4. LISINOPRIL. [Concomitant]
     Active Substance: LISINOPRIL
  5. XANAX [Concomitant]
     Active Substance: ALPRAZOLAM
  6. BENADRYL [Concomitant]
     Active Substance: DIPHENHYDRAMINE HYDROCHLORIDE
  7. HUMIRA [Suspect]
     Active Substance: ADALIMUMAB
     Indication: ANKYLOSING SPONDYLITIS
     Dosage: 2 INJECTION, 1 INJECTION EVERY 2 WEEKS, INJECTION
     Dates: start: 20140522, end: 20140925
  8. TYLENOL [Concomitant]
     Active Substance: ACETAMINOPHEN
  9. RANITIDNE [Concomitant]

REACTIONS (6)
  - Confusional state [None]
  - Dizziness [None]
  - Pyrexia [None]
  - Blood pressure increased [None]
  - Nervousness [None]
  - Flatulence [None]

NARRATIVE: CASE EVENT DATE: 20141001
